FAERS Safety Report 24587381 (Version 2)
Quarter: 2024Q4

REPORT INFORMATION
  Report Type: Spontaneous
  Country: CN (occurrence: CN)
  Receive Date: 20241107
  Receipt Date: 20241122
  Transmission Date: 20250114
  Serious: Yes (Hospitalization)
  Sender: TEVA
  Company Number: CN-TEVA-VS-3259745

PATIENT
  Age: 50 Year
  Sex: Male

DRUGS (3)
  1. CLOPIDOGREL [Suspect]
     Active Substance: CLOPIDOGREL BISULFATE
     Indication: Ischaemic stroke
     Route: 048
  2. ROSUVASTATIN [Suspect]
     Active Substance: ROSUVASTATIN
     Indication: Carotid artery stenosis
     Route: 048
  3. ALTEPLASE [Suspect]
     Active Substance: ALTEPLASE
     Indication: Carotid artery stenosis
     Dosage: THROMBOLYSIS USING RECOMBINANT TISSUE PLASMINOGEN ACTIVATOR (RT-PA)
     Route: 042

REACTIONS (2)
  - Multiple-drug resistance [Unknown]
  - Drug ineffective [Unknown]
